FAERS Safety Report 25759700 (Version 2)
Quarter: 2025Q4

REPORT INFORMATION
  Report Type: Spontaneous
  Country: US (occurrence: US)
  Receive Date: 20250904
  Receipt Date: 20251010
  Transmission Date: 20260118
  Serious: No
  Sender: TOLMAR
  Company Number: US-Tolmar-TLM-2025-05531

PATIENT

DRUGS (3)
  1. ELIGARD [Suspect]
     Active Substance: LEUPROLIDE ACETATE
     Indication: Product used for unknown indication
     Dosage: EXP DATE: 30-SEP-2026; -OCT-2026; SEP-2026?SN: 9648187002646?GTIN: 00362935227106?DOSE NOT ADMINISTE
  2. ELIGARD [Suspect]
     Active Substance: LEUPROLIDE ACETATE
     Dosage: REPLACEMENT DOSE GIVEN
  3. DEVICE [Suspect]
     Active Substance: DEVICE
     Indication: Product used for unknown indication
     Dosage: EXP DATE: 30-SEP-2026; -OCT-2026; SEP-2026?SN: 9648187002646?GTIN: 00362935227106

REACTIONS (2)
  - Intercepted product preparation error [Unknown]
  - Device leakage [Unknown]
